FAERS Safety Report 18564614 (Version 1)
Quarter: 2020Q4

REPORT INFORMATION
  Report Type: Spontaneous
  Country: US (occurrence: US)
  Receive Date: 20201201
  Receipt Date: 20201201
  Transmission Date: 20210114
  Serious: Yes (Other)
  Sender: FDA-Public Use
  Company Number: NVSC2020US318829

PATIENT
  Age: 72 Year
  Sex: Male

DRUGS (4)
  1. METHYLPREDNISOLONE. [Suspect]
     Active Substance: METHYLPREDNISOLONE
     Indication: APLASTIC ANAEMIA
     Dosage: UNK
     Route: 065
  2. ANTITHYMOCYTE IMMUNOGLOBULIN (HORSE) [Suspect]
     Active Substance: EQUINE THYMOCYTE IMMUNE GLOBULIN
     Indication: APLASTIC ANAEMIA
     Dosage: UNK
     Route: 065
  3. CYCLOSPORINE. [Suspect]
     Active Substance: CYCLOSPORINE
     Indication: APLASTIC ANAEMIA
     Dosage: UNK
     Route: 065
  4. RITUXIMAB. [Concomitant]
     Active Substance: RITUXIMAB
     Indication: ACQUIRED AMEGAKARYOCYTIC THROMBOCYTOPENIA
     Dosage: UNK, FOUR DOSES
     Route: 065
     Dates: start: 2020

REACTIONS (3)
  - Pancytopenia [Unknown]
  - Product use in unapproved indication [Unknown]
  - Aplastic anaemia [Unknown]
